FAERS Safety Report 9454169 (Version 1)
Quarter: 2013Q3

REPORT INFORMATION
  Report Type: Spontaneous
  Country: US (occurrence: None)
  Receive Date: 20130807
  Receipt Date: 20130807
  Transmission Date: 20140515
  Serious: Yes (Hospitalization)
  Sender: FDA-Public Use
  Company Number: SYM-2013-07637

PATIENT
  Age: 19 Year
  Sex: Female

DRUGS (1)
  1. XENAZINE (TETRABENAZINE) (TABLET) (TETRABENAZINE) [Suspect]
     Indication: HUNTINGTON^S DISEASE
     Route: 048
     Dates: start: 201206

REACTIONS (6)
  - Anxiety [None]
  - Agitation [None]
  - Irritability [None]
  - Overdose [None]
  - Victim of sexual abuse [None]
  - Drug dependence [None]
